FAERS Safety Report 4638249-5 (Version None)
Quarter: 2005Q2

REPORT INFORMATION
  Report Type: 
  Country: None (occurrence: None)
  Receive Date: 20050415
  Receipt Date: 20050405
  Transmission Date: 20051028
  Serious: Yes (Other)
  Sender: FDA-Public Use
  Company Number: 2004088892

PATIENT
  Sex: Male
  Weight: 81.6475 kg

DRUGS (13)
  1. CELEBREX [Suspect]
     Indication: OSTEOARTHRITIS
     Dosage: SEE IMAGE
     Route: 048
     Dates: start: 20000301, end: 20050330
  2. CELEBREX [Suspect]
     Indication: OSTEOARTHRITIS
     Dosage: SEE IMAGE
     Route: 048
     Dates: start: 20041001
  3. ROFECOXIB [Suspect]
     Indication: ILL-DEFINED DISORDER
     Dosage: UNKNOWN
     Route: 065
     Dates: start: 20020701, end: 20040930
  4. TOCOPHEROL (TOCOPHEROL) [Concomitant]
  5. RETINOL (RETINOL) [Concomitant]
  6. B-KOMPLEX (CALCIUM PANTOTHENATE, NICOTINAMIDE, PYRIDOXINE HYDROCHLORID [Concomitant]
  7. MULTIVITAMINS (ASCORBIC ACID, ERGOCALCIFEROL, FOLIC ACID, NICOTINAMIDE [Concomitant]
  8. GLUCOSAMINE SULFATE/MINERALS/MULTIVITAMINS (GLUCOSAMINE SULFATE, MINER [Concomitant]
  9. ERGOCALCIFEROL (ERGOCALCIFEROL) [Concomitant]
  10. ASCORBIC ACID [Concomitant]
  11. DIGOXIN [Concomitant]
  12. VITAMINS (VITAMINS) [Concomitant]
  13. ASPIRIN [Concomitant]

REACTIONS (5)
  - ARRHYTHMIA [None]
  - ATRIAL TACHYCARDIA [None]
  - CARDIAC DISORDER [None]
  - DEHYDRATION [None]
  - EXTRASYSTOLES [None]
